FAERS Safety Report 12009925 (Version 2)
Quarter: 2016Q1

REPORT INFORMATION
  Report Type: Report from Study
  Country: GB (occurrence: GB)
  Receive Date: 20160205
  Receipt Date: 20160209
  Transmission Date: 20160526
  Serious: Yes (Other)
  Sender: FDA-Public Use
  Company Number: PHFR2016GB001235

PATIENT
  Age: 42 Year
  Sex: Female

DRUGS (1)
  1. GILENYA [Suspect]
     Active Substance: FINGOLIMOD HYDROCHLORIDE
     Indication: MULTIPLE SCLEROSIS
     Dosage: 0.5 MG, UNK
     Route: 065
     Dates: start: 20160201, end: 20160201

REACTIONS (4)
  - Atrioventricular block first degree [Unknown]
  - Sinus bradycardia [Unknown]
  - Ventricular extrasystoles [Unknown]
  - Palpitations [Unknown]

NARRATIVE: CASE EVENT DATE: 20160201
